FAERS Safety Report 16673176 (Version 4)
Quarter: 2019Q4

REPORT INFORMATION
  Report Type: Spontaneous
  Country: US (occurrence: US)
  Receive Date: 20190806
  Receipt Date: 20191121
  Transmission Date: 20200122
  Serious: No
  Sender: FDA-Public Use
  Company Number: US-PFIZER INC-2019331260

PATIENT
  Age: 65 Year
  Sex: Male
  Weight: 92.97 kg

DRUGS (4)
  1. LEVOTHYROXINE. [Concomitant]
     Active Substance: LEVOTHYROXINE
     Dosage: 137 UG, UNK
     Dates: start: 2016
  2. ATORVASTATIN [Concomitant]
     Active Substance: ATORVASTATIN
     Dosage: 40 MG, UNK
     Dates: start: 2014
  3. PANTOPRAZOLE [Concomitant]
     Active Substance: PANTOPRAZOLE
     Dosage: 40 MG, UNK
     Dates: start: 2014
  4. SUTENT [Suspect]
     Active Substance: SUNITINIB MALATE
     Indication: MENINGIOMA
     Dosage: 37.5 MG, UNK, [ONCE/DAY FOR 2 WEEK PERIOD]

REACTIONS (3)
  - Renal cyst [Recovered/Resolved]
  - Product use in unapproved indication [Unknown]
  - Off label use [Unknown]
